FAERS Safety Report 24007356 (Version 1)
Quarter: 2024Q2

REPORT INFORMATION
  Report Type: Report from Study
  Country: CN (occurrence: CN)
  Receive Date: 20240624
  Receipt Date: 20240624
  Transmission Date: 20240716
  Serious: Yes (Hospitalization, Other)
  Sender: FDA-Public Use
  Company Number: CN-Orient Pharma-000238

PATIENT
  Age: 84 Year
  Sex: Male

DRUGS (5)
  1. VANCOMYCIN [Suspect]
     Active Substance: VANCOMYCIN
     Indication: Pneumonia
  2. AMBROXOL [Suspect]
     Active Substance: AMBROXOL
     Indication: Pneumonia
  3. DOXOFYLLINE [Suspect]
     Active Substance: DOXOFYLLINE
     Indication: Pneumonia
  4. VANCOMYCIN [Suspect]
     Active Substance: VANCOMYCIN
     Indication: Pneumonia
  5. VANCOMYCIN [Suspect]
     Active Substance: VANCOMYCIN
     Indication: Pneumonia

REACTIONS (1)
  - Drug-induced liver injury [Recovered/Resolved]
